FAERS Safety Report 8759356 (Version 1)
Quarter: 2012Q4

REPORT INFORMATION
  Report Type: 
  Country: FR (occurrence: FR)
  Receive Date: 20120829
  Receipt Date: 20120829
  Transmission Date: 20130627
  Serious: Yes (Hospitalization)
  Sender: FDA-Public Use
  Company Number: FR-ABBOTT-12P-056-0972649-00

PATIENT
  Age: 89 Year
  Sex: Female

DRUGS (1)
  1. DEPAKINE CHRONO TABLETS [Suspect]
     Indication: EPILEPSY
     Dosage: 500mg daily
     Route: 048
     Dates: end: 20120704

REACTIONS (2)
  - Disturbance in attention [Unknown]
  - Hyponatraemia [Unknown]
